FAERS Safety Report 8274040-9 (Version None)
Quarter: 2012Q2

REPORT INFORMATION
  Report Type: 
  Country: None (occurrence: None)
  Receive Date: 20120409
  Receipt Date: 20120327
  Transmission Date: 20120825
  Serious: Yes (Hospitalization)
  Sender: FDA-Public Use
  Company Number: JPI-P-020510

PATIENT
  Age: 64 Year
  Sex: Female
  Weight: 63.05 kg

DRUGS (1)
  1. XYREM [Suspect]
     Indication: CATAPLEXY
     Dosage: 2 GM (1 GM, 2 IN 1 D), ORAL
     Route: 048
     Dates: start: 20030516

REACTIONS (9)
  - DYSPNOEA [None]
  - UPPER LIMB FRACTURE [None]
  - PULMONARY HYPERTENSION [None]
  - OEDEMA PERIPHERAL [None]
  - FATIGUE [None]
  - LOCALISED OEDEMA [None]
  - FALL [None]
  - CARDIAC FAILURE CONGESTIVE [None]
  - HYPERTENSION [None]
